FAERS Safety Report 10888638 (Version 1)
Quarter: 2015Q1

REPORT INFORMATION
  Report Type: Spontaneous
  Country: US (occurrence: US)
  Receive Date: 20150305
  Receipt Date: 20150305
  Transmission Date: 20150721
  Serious: No
  Sender: FDA-Public Use
  Company Number: US-SA-2015SA016248

PATIENT
  Age: 36 Year
  Sex: Male

DRUGS (1)
  1. CERDELGA [Suspect]
     Active Substance: ELIGLUSTAT
     Indication: GAUCHER^S DISEASE
     Route: 048
     Dates: start: 201411

REACTIONS (4)
  - Gastrooesophageal reflux disease [Unknown]
  - Constipation [Unknown]
  - Diverticulum intestinal [Unknown]
  - Dyspepsia [Unknown]

NARRATIVE: CASE EVENT DATE: 201501
